FAERS Safety Report 9276125 (Version 2)
Quarter: 2013Q3

REPORT INFORMATION
  Report Type: Report from Study
  Country: JP (occurrence: JP)
  Receive Date: 20130507
  Receipt Date: 20130917
  Transmission Date: 20140515
  Serious: Yes (Death, Other)
  Sender: FDA-Public Use
  Company Number: JP-JNJFOC-20130503278

PATIENT
  Age: 88 Year
  Sex: Female
  Weight: 38 kg

DRUGS (8)
  1. XARELTO [Suspect]
     Indication: ATRIAL FIBRILLATION
     Route: 048
     Dates: start: 20121122, end: 20130415
  2. XARELTO [Suspect]
     Indication: THROMBOSIS PROPHYLAXIS
     Route: 048
     Dates: start: 20121122, end: 20130415
  3. XARELTO [Suspect]
     Indication: CEREBROVASCULAR ACCIDENT PROPHYLAXIS
     Route: 048
     Dates: start: 20121122, end: 20130415
  4. ADALAT CR [Concomitant]
     Route: 048
     Dates: end: 20130415
  5. SIGMART [Concomitant]
     Route: 048
     Dates: end: 20130425
  6. PREDNISOLONE [Concomitant]
     Route: 048
     Dates: end: 20130425
  7. TAKEPRON [Concomitant]
     Route: 048
     Dates: end: 20130425
  8. LASIX [Concomitant]
     Route: 048
     Dates: end: 20130425

REACTIONS (2)
  - Bronchitis [Fatal]
  - Gastrointestinal haemorrhage [Recovering/Resolving]
